FAERS Safety Report 25621004 (Version 1)
Quarter: 2025Q3

REPORT INFORMATION
  Report Type: Report from Study
  Country: US (occurrence: US)
  Receive Date: 20250730
  Receipt Date: 20250730
  Transmission Date: 20251020
  Serious: Yes (Hospitalization)
  Sender: ALEXION PHARMACEUTICALS
  Company Number: US-AstraZeneca-CH-00917660A

PATIENT
  Sex: Female
  Weight: 67.5 kg

DRUGS (16)
  1. ACALABRUTINIB [Suspect]
     Active Substance: ACALABRUTINIB
     Indication: Chronic lymphocytic leukaemia (in remission)
     Dosage: 100 MILLIGRAM, BID
  2. AMOXICILLIN [Concomitant]
     Active Substance: AMOXICILLIN
     Route: 065
  3. ASPIRIN [Concomitant]
     Active Substance: ASPIRIN
     Route: 065
  4. ATORVASTATIN [Concomitant]
     Active Substance: ATORVASTATIN
     Route: 065
  5. BENZONATATE [Concomitant]
     Active Substance: BENZONATATE
     Route: 065
  6. ISOSORBIDE DINITRATE [Concomitant]
     Active Substance: ISOSORBIDE DINITRATE
     Route: 065
  7. KEPPRA [Concomitant]
     Active Substance: LEVETIRACETAM
     Route: 065
  8. LEVOTHYROXINE [Concomitant]
     Active Substance: LEVOTHYROXINE
     Route: 065
  9. METOPROLOL [Concomitant]
     Active Substance: METOPROLOL
     Route: 065
  10. VITAMINS [Concomitant]
     Active Substance: VITAMINS
     Route: 065
  11. SPIRONOLACTONE [Concomitant]
     Active Substance: SPIRONOLACTONE
     Route: 065
  12. TIMOLOL MALEATE [Concomitant]
     Active Substance: TIMOLOL MALEATE
     Route: 065
  13. ASPIRIN [Concomitant]
     Active Substance: ASPIRIN
     Route: 065
  14. METOPROLOL SUCCINATE [Concomitant]
     Active Substance: METOPROLOL SUCCINATE
     Route: 065
  15. MUCUS [Concomitant]
     Active Substance: GUAIFENESIN
     Route: 065
  16. VITAMIN D [Concomitant]
     Active Substance: VITAMIN D NOS
     Route: 065

REACTIONS (2)
  - Pneumonia [Unknown]
  - Myocardial infarction [Unknown]
